FAERS Safety Report 9387265 (Version 3)
Quarter: 2013Q3

REPORT INFORMATION
  Report Type: Spontaneous
  Country: JP (occurrence: JP)
  Receive Date: 20130708
  Receipt Date: 20130808
  Transmission Date: 20140515
  Serious: Yes (Hospitalization)
  Sender: FDA-Public Use
  Company Number: JP-JNJFOC-20130509051

PATIENT
  Age: 89 Year
  Sex: Male

DRUGS (9)
  1. REMINYL [Suspect]
     Indication: DEMENTIA ALZHEIMER^S TYPE
     Route: 048
     Dates: start: 20130507, end: 20130509
  2. PARKISTON [Concomitant]
     Route: 048
  3. TRIHEXIN [Concomitant]
     Route: 048
  4. ADETPHOS [Concomitant]
     Route: 048
  5. CEPHADOL [Concomitant]
     Route: 048
  6. PRAVASTATIN SODIUM [Concomitant]
     Route: 048
  7. DAIOKANZOTO [Concomitant]
     Route: 048
  8. LOSARTAN POTASSIUM [Concomitant]
     Route: 048
  9. URIEF [Concomitant]
     Route: 048

REACTIONS (2)
  - Drug-induced liver injury [Recovering/Resolving]
  - Blood pressure fluctuation [Recovering/Resolving]
